FAERS Safety Report 11404169 (Version 1)
Quarter: 2015Q3

REPORT INFORMATION
  Report Type: Spontaneous
  Country: US (occurrence: US)
  Receive Date: 20150821
  Receipt Date: 20150821
  Transmission Date: 20151125
  Serious: Yes (Other)
  Sender: FDA-Public Use
  Company Number: US-SUN PHARMACEUTICAL INDUSTRIES LTD-2014SUN01856

PATIENT

DRUGS (46)
  1. HUMAN ALBUMIN [Concomitant]
     Active Substance: ALBUMIN (HUMAN)
  2. ACYCLOVIR. [Concomitant]
     Active Substance: ACYCLOVIR
  3. FENTANYL. [Concomitant]
     Active Substance: FENTANYL
  4. ANTI-THYMOCYTE GLOBULIN (RABBIT) NOS [Concomitant]
     Active Substance: LAPINE T-LYMPHOCYTE IMMUNE GLOBULIN
  5. TACROLIMUS. [Concomitant]
     Active Substance: TACROLIMUS
  6. SULFAMETHOXAZOLE AND TRIMETHOPRIM [Suspect]
     Active Substance: SULFAMETHOXAZOLE\TRIMETHOPRIM
     Indication: PRODUCT USED FOR UNKNOWN INDICATION
     Route: 065
  7. LANTHANUM CARBONATE. [Concomitant]
     Active Substance: LANTHANUM CARBONATE
  8. CINACALCET [Concomitant]
     Active Substance: CINACALCET
  9. BISACODYL. [Concomitant]
     Active Substance: BISACODYL
  10. DIPHENHYDRAMINE. [Concomitant]
     Active Substance: DIPHENHYDRAMINE
  11. NIFEDIPINE. [Concomitant]
     Active Substance: NIFEDIPINE
  12. OXYCODONE/ACETAMINOPHEN [Concomitant]
     Active Substance: ACETAMINOPHEN\OXYCODONE HYDROCHLORIDE
  13. DOXERCALCIFEROL. [Concomitant]
     Active Substance: DOXERCALCIFEROL
  14. ESOMEPRAZOLE [Concomitant]
     Active Substance: ESOMEPRAZOLE
  15. FUROSEMIDE. [Concomitant]
     Active Substance: FUROSEMIDE
  16. HYDROMORPHONE [Concomitant]
     Active Substance: HYDROMORPHONE
  17. CLONAZEPAM. [Concomitant]
     Active Substance: CLONAZEPAM
  18. CLONAZEPAM. [Concomitant]
     Active Substance: CLONAZEPAM
  19. METHYLPREDNISOLONE. [Concomitant]
     Active Substance: METHYLPREDNISOLONE
  20. METHYLPREDNISOLONE. [Concomitant]
     Active Substance: METHYLPREDNISOLONE
  21. ALLOPURINOL. [Concomitant]
     Active Substance: ALLOPURINOL
  22. CALCIUM GLUCONATE. [Concomitant]
     Active Substance: CALCIUM GLUCONATE
  23. VALGANCICLOVIR [Concomitant]
     Active Substance: VALGANCICLOVIR
  24. OMEPRAZOLE. [Concomitant]
     Active Substance: OMEPRAZOLE
  25. MIDAZOLAM [Concomitant]
     Active Substance: MIDAZOLAM\MIDAZOLAM HYDROCHLORIDE
  26. ESMOLOL [Concomitant]
     Active Substance: ESMOLOL HYDROCHLORIDE
  27. CISTRACURIUM [Concomitant]
  28. SEVELAMER [Concomitant]
     Active Substance: SEVELAMER
  29. DOCUSATE SODIUM. [Concomitant]
     Active Substance: DOCUSATE SODIUM
  30. REGULAR INSULIN [Concomitant]
     Active Substance: INSULIN NOS
  31. PROPOFOL. [Concomitant]
     Active Substance: PROPOFOL
  32. GLYCOPYRROLATE. [Concomitant]
     Active Substance: GLYCOPYRROLATE
  33. DEXAMETHASONE. [Concomitant]
     Active Substance: DEXAMETHASONE
  34. IRON SUCROSE [Concomitant]
     Active Substance: IRON SUCROSE
  35. MYCOPHENOLIC ACID. [Concomitant]
     Active Substance: MYCOPHENOLIC ACID
  36. CALCITRIOL. [Concomitant]
     Active Substance: CALCITRIOL
  37. MORPHINE SULFATE. [Concomitant]
     Active Substance: MORPHINE SULFATE
  38. CEFAZOLIN [Concomitant]
     Active Substance: CEFAZOLIN
  39. ONDANSETRON [Concomitant]
     Active Substance: ONDANSETRON
  40. NEOSTIGMINE [Concomitant]
     Active Substance: NEOSTIGMINE
  41. ERYTHROPOIETIN [Concomitant]
     Active Substance: ERYTHROPOIETIN
  42. ASPIRIN. [Concomitant]
     Active Substance: ASPIRIN
  43. CARVEDILOL. [Concomitant]
     Active Substance: CARVEDILOL
  44. NEPHROCAPS [Concomitant]
     Active Substance: ASCORBIC ACID\BIOTIN\CYANOCOBALAMIN\FOLIC ACID\NIACIN\PANTOTHENIC ACID\PYRIDOXINE\RIBOFLAVIN\THIAMINE
  45. ACETAMINOPHEN. [Concomitant]
     Active Substance: ACETAMINOPHEN
  46. CLOTRIMAZOLE. [Concomitant]
     Active Substance: CLOTRIMAZOLE

REACTIONS (1)
  - Acute kidney injury [Recovered/Resolved]

NARRATIVE: CASE EVENT DATE: 201101
